FAERS Safety Report 10654376 (Version 1)
Quarter: 2014Q4

REPORT INFORMATION
  Report Type: Spontaneous
  Country: US (occurrence: None)
  Receive Date: 20141215
  Receipt Date: 20141215
  Transmission Date: 20150529
  Serious: Yes (Hospitalization)
  Sender: FDA-Public Use
  Company Number: None

PATIENT
  Age: 66 Year
  Sex: Female
  Weight: 58.9 kg

DRUGS (2)
  1. TAXOL [Suspect]
     Active Substance: PACLITAXEL
     Dates: end: 20141203
  2. CYCLOPHOSPHAMIDE. [Suspect]
     Active Substance: CYCLOPHOSPHAMIDE
     Dates: end: 20141001

REACTIONS (7)
  - Hypoxia [None]
  - Cough [None]
  - Vomiting [None]
  - Nausea [None]
  - Pneumonitis [None]
  - Fatigue [None]
  - Atrial thrombosis [None]

NARRATIVE: CASE EVENT DATE: 20141203
